FAERS Safety Report 4728432-2 (Version None)
Quarter: 2005Q3

REPORT INFORMATION
  Report Type: 
  Country: None (occurrence: None)
  Receive Date: 20050729
  Receipt Date: 20041230
  Transmission Date: 20060218
  Serious: No
  Sender: FDA-Public Use
  Company Number: US-GLAXOSMITHKLINE-A0538844A

PATIENT
  Age: 3 Month
  Sex: Female

DRUGS (2)
  1. ZANTAC [Suspect]
     Dosage: 1ML TWICE PER DAY
     Route: 048
     Dates: start: 20041228
  2. NO CONCURRENT MEDICATION [Concomitant]

REACTIONS (2)
  - DYSGEUSIA [None]
  - PRODUCTIVE COUGH [None]
